FAERS Safety Report 5700239-9 (Version None)
Quarter: 2008Q2

REPORT INFORMATION
  Report Type: 
  Country: None (occurrence: None)
  Receive Date: 20080410
  Receipt Date: 20080402
  Transmission Date: 20081010
  Serious: Yes (Hospitalization)
  Sender: FDA-Public Use
  Company Number: DE-PFIZER INC-2008029745

PATIENT
  Sex: Male

DRUGS (2)
  1. NORVASC [Suspect]
     Indication: HYPERTENSION
     Route: 048
  2. ENALAPRIL MALEATE [Suspect]
     Indication: HYPERTENSION

REACTIONS (2)
  - GYNAECOMASTIA [None]
  - RECTAL CANCER [None]
